FAERS Safety Report 5131002-8 (Version None)
Quarter: 2006Q4

REPORT INFORMATION
  Report Type: 
  Country: None (occurrence: None)
  Receive Date: 20061019
  Receipt Date: 20061010
  Transmission Date: 20070319
  Serious: Yes (Life-Threatening)
  Sender: FDA-Public Use
  Company Number: GB-MERCK-0610GBR00093

PATIENT
  Sex: Female
  Weight: 59 kg

DRUGS (6)
  1. FOSAMAX [Suspect]
     Indication: OSTEOPOROSIS
     Route: 048
     Dates: start: 20040606, end: 20060725
  2. CALCIUM CARBONATE AND CHOLECALCIFEROL [Concomitant]
     Route: 048
     Dates: start: 20040830
  3. BENDROFLUMETHIAZIDE [Concomitant]
     Route: 048
     Dates: start: 20050224, end: 20060802
  4. CODEINE PHOSPHATE [Concomitant]
     Route: 048
     Dates: start: 20030221
  5. DOXAZOSIN MESYLATE [Concomitant]
     Route: 048
     Dates: start: 20000401
  6. ALBUTEROL [Concomitant]
     Route: 055
     Dates: start: 20030221

REACTIONS (1)
  - OESOPHAGEAL CARCINOMA [None]
